FAERS Safety Report 17446636 (Version 1)
Quarter: 2020Q1

REPORT INFORMATION
  Report Type: Report from Study
  Country: IT (occurrence: IT)
  Receive Date: 20200221
  Receipt Date: 20200221
  Transmission Date: 20200409
  Serious: Yes (Other)
  Sender: FDA-Public Use
  Company Number: IT-AMGEN-ITACT2020027869

PATIENT
  Age: 60 Year
  Sex: Female
  Weight: 59 kg

DRUGS (20)
  1. BLINATUMOMAB [Suspect]
     Active Substance: BLINATUMOMAB
     Indication: B PRECURSOR TYPE ACUTE LEUKAEMIA
     Dosage: UNK
     Route: 065
  2. PEG/L-ASPARAGINASE [Suspect]
     Active Substance: PEGASPARGASE
     Indication: B PRECURSOR TYPE ACUTE LEUKAEMIA
     Dosage: 830 UNIT, QD, LEFT OUT DUE TO LIVER TOXICITY GRADE 4 AND UNSUITABLE COAGULATION
     Route: 042
  3. GLUCOSIO [Concomitant]
     Active Substance: DEXTROSE
     Dosage: UNK
     Route: 042
     Dates: start: 20190409, end: 20190423
  4. KONAKION [Concomitant]
     Active Substance: PHYTONADIONE
     Dosage: UNK
     Route: 042
     Dates: start: 20190412, end: 20190414
  5. VINCRISTINA [VINCRISTINE] [Suspect]
     Active Substance: VINCRISTINE
     Dosage: 2 MILLIGRAM, QD
     Route: 042
     Dates: start: 20190408
  6. AMBISOME [Concomitant]
     Active Substance: AMPHOTERICIN B
     Dosage: UNK
     Route: 042
     Dates: start: 20190411, end: 20190416
  7. MERREM [Concomitant]
     Active Substance: MEROPENEM
     Dosage: UNK
     Route: 042
     Dates: start: 20190409, end: 20190424
  8. IDARUBICINA [IDARUBICIN] [Suspect]
     Active Substance: IDARUBICIN
     Dosage: 9 MILLIGRAM, QD
     Route: 042
     Dates: start: 20190402
  9. ISOPURAMIN [Concomitant]
  10. VINCRISTINA [VINCRISTINE] [Suspect]
     Active Substance: VINCRISTINE
     Indication: B PRECURSOR TYPE ACUTE LEUKAEMIA
     Dosage: 2 MILLIGRAM, QD
     Route: 042
     Dates: start: 20190401
  11. DEXAMETHASONE. [Suspect]
     Active Substance: DEXAMETHASONE
     Indication: B PRECURSOR TYPE ACUTE LEUKAEMIA
     Dosage: 16 MILLIGRAM, QD
     Route: 042
     Dates: start: 20190401, end: 20190405
  12. LANSOX [Concomitant]
     Active Substance: LANSOPRAZOLE
     Dosage: UNK
     Route: 048
     Dates: start: 20190327, end: 20190424
  13. MYCOSTATIN [Concomitant]
     Active Substance: NYSTATIN
     Dosage: UNK
     Route: 048
     Dates: start: 20190401, end: 20190423
  14. URBASON [METHYLPREDNISOLONE] [Concomitant]
     Active Substance: METHYLPREDNISOLONE
     Dosage: UNK, 3F 20MG+3F 1ML
     Route: 042
     Dates: start: 20190410, end: 20190418
  15. ZARZIO [Concomitant]
     Active Substance: FILGRASTIM
     Dosage: UNK, ISIR 30MU 0,5ML
     Route: 058
     Dates: start: 20190410, end: 20190425
  16. IDARUBICINA [IDARUBICIN] [Suspect]
     Active Substance: IDARUBICIN
     Indication: B PRECURSOR TYPE ACUTE LEUKAEMIA
     Dosage: 9 MILLIGRAM, QD
     Route: 042
     Dates: start: 20190401
  17. BACTRIM PERFUSIONE [Concomitant]
     Active Substance: SULFAMETHOXAZOLE\TRIMETHOPRIM
     Dosage: UNK
     Route: 042
     Dates: start: 20190410, end: 20190415
  18. VINCRISTINA [VINCRISTINE] [Suspect]
     Active Substance: VINCRISTINE
     Dosage: 2 MILLIGRAM, QD, (NOT ADMINISTERED A DAY 22 DUE TO SAE)
     Route: 042
     Dates: start: 20190415
  19. DEXAMETHASONE. [Suspect]
     Active Substance: DEXAMETHASONE
     Dosage: 16 MILLIGRAM, QD
     Route: 042
     Dates: start: 20190415, end: 20190419
  20. TYGACIL [Concomitant]
     Active Substance: TIGECYCLINE
     Dosage: UNK, 10 FL 5ML 50MG
     Route: 042
     Dates: start: 20190411, end: 20190423

REACTIONS (1)
  - Ileus paralytic [Recovered/Resolved]

NARRATIVE: CASE EVENT DATE: 20190412
